FAERS Safety Report 15796841 (Version 1)
Quarter: 2019Q1

REPORT INFORMATION
  Report Type: Spontaneous
  Country: CN (occurrence: CN)
  Receive Date: 20190108
  Receipt Date: 20190108
  Transmission Date: 20190417
  Serious: Yes (Other)
  Sender: FDA-Public Use
  Company Number: CN-ASTRAZENECA-2019SE02162

PATIENT
  Sex: Female
  Weight: 75 kg

DRUGS (1)
  1. SAXAGLIPTIN [Suspect]
     Active Substance: SAXAGLIPTIN
     Indication: HYPERGLYCAEMIA
     Route: 048
     Dates: start: 20181107, end: 20181112

REACTIONS (1)
  - Oedema [Recovering/Resolving]
